FAERS Safety Report 8143526-X (Version None)
Quarter: 2012Q1

REPORT INFORMATION
  Report Type: 
  Country: None (occurrence: None)
  Receive Date: 20120217
  Receipt Date: 20120210
  Transmission Date: 20120608
  Serious: Yes (Other)
  Sender: FDA-Public Use
  Company Number: GB-PERRIGO-12GB001119

PATIENT
  Age: 52 Year
  Sex: Female
  Weight: 59 kg

DRUGS (4)
  1. CLOPIDOGREL [Suspect]
     Indication: THROMBOCYTOSIS
     Dosage: 75 MG, QD
     Route: 048
     Dates: start: 20110927, end: 20111209
  2. RANITIDINE HYDROCHLORIDE [Suspect]
     Indication: URTICARIA
     Dosage: 150 MG, BID
     Route: 048
     Dates: start: 20110711, end: 20111209
  3. CANDESARTAN CILEXETIL [Concomitant]
     Indication: HYPERTENSION
     Dosage: 2 MG, UNK
     Route: 065
     Dates: start: 20081212
  4. CETIRIZINE [Concomitant]
     Indication: URTICARIA
     Dosage: 10 MG, UNK
     Route: 048
     Dates: start: 20040319

REACTIONS (2)
  - ALANINE AMINOTRANSFERASE INCREASED [None]
  - HEPATITIS [None]
